FAERS Safety Report 7479205-1 (Version None)
Quarter: 2011Q2

REPORT INFORMATION
  Report Type: 
  Country: None (occurrence: None)
  Receive Date: 20110513
  Receipt Date: 20110509
  Transmission Date: 20111010
  Serious: Yes (Hospitalization)
  Sender: FDA-Public Use
  Company Number: A0926587A

PATIENT
  Age: 68 Year
  Sex: Male

DRUGS (9)
  1. VOTRIENT [Suspect]
     Dosage: 600MG PER DAY
     Route: 048
     Dates: start: 20080701
  2. PLAVIX [Concomitant]
  3. SODIUM BICARBONATE [Concomitant]
  4. CIPRO [Concomitant]
  5. COREG [Concomitant]
  6. CRESTOR [Concomitant]
  7. MEPERIDINE [Concomitant]
  8. ALPRAZOLAM [Concomitant]
  9. ZEGERID [Concomitant]

REACTIONS (3)
  - PNEUMONIA [None]
  - VOMITING [None]
  - NAUSEA [None]
